FAERS Safety Report 11469844 (Version 1)
Quarter: 2015Q3

REPORT INFORMATION
  Report Type: Spontaneous
  Country: DK (occurrence: DK)
  Receive Date: 20150908
  Receipt Date: 20150908
  Transmission Date: 20151125
  Serious: Yes (Hospitalization)
  Sender: FDA-Public Use
  Company Number: DK-MYLANLABS-2015M1029751

PATIENT

DRUGS (5)
  1. CICLOSPORIN [Suspect]
     Active Substance: CYCLOSPORINE
     Indication: IMMUNOSUPPRESSION
     Route: 065
  2. MYCOPHENOLATE MOFETIL. [Suspect]
     Active Substance: MYCOPHENOLATE MOFETIL
     Indication: IMMUNOSUPPRESSION
     Route: 065
  3. RAMIPRIL. [Suspect]
     Active Substance: RAMIPRIL
     Indication: HYPERTENSION
     Dosage: 2.5 MG/DAY
     Route: 065
  4. RAMIPRIL. [Suspect]
     Active Substance: RAMIPRIL
     Dosage: 5 MG/DAY
     Route: 065
  5. EVEROLIMUS [Suspect]
     Active Substance: EVEROLIMUS
     Indication: IMMUNOSUPPRESSION
     Route: 065

REACTIONS (2)
  - Angioedema [Recovered/Resolved]
  - Skin cancer [Unknown]
